FAERS Safety Report 4523929-2 (Version None)
Quarter: 2004Q4

REPORT INFORMATION
  Report Type: 
  Country: None (occurrence: None)
  Receive Date: 20041209
  Receipt Date: 20041129
  Transmission Date: 20050328
  Serious: No
  Sender: FDA-Public Use
  Company Number: SUS1-2004-00787

PATIENT
  Age: 42 Year
  Sex: Male

DRUGS (4)
  1. CARBATROL [Suspect]
     Indication: CONVULSION
     Dates: start: 20041127, end: 20041128
  2. DILANTIN D.A. (PHENYTOIN SODIUM) [Concomitant]
  3. PHENOBARBITAL TAB [Concomitant]
  4. LAMICTAL [Concomitant]

REACTIONS (4)
  - ANTICONVULSANT DRUG LEVEL DECREASED [None]
  - ASTHENIA [None]
  - DEPRESSED MOOD [None]
  - FEELING ABNORMAL [None]
